FAERS Safety Report 16790291 (Version 1)
Quarter: 2019Q3

REPORT INFORMATION
  Report Type: Spontaneous
  Country: PL (occurrence: PL)
  Receive Date: 20190910
  Receipt Date: 20190910
  Transmission Date: 20191005
  Serious: Yes (Hospitalization, Other)
  Sender: FDA-Public Use
  Company Number: PHHY2019PL206450

PATIENT
  Age: 74 Year
  Sex: Male
  Weight: 75 kg

DRUGS (8)
  1. GLIVEC [Suspect]
     Active Substance: IMATINIB MESYLATE
     Indication: PRODUCT USED FOR UNKNOWN INDICATION
     Dosage: 800 MG, UNK
     Route: 065
  2. POLSEN [Concomitant]
     Active Substance: ZOLPIDEM TARTRATE
     Indication: PRODUCT USED FOR UNKNOWN INDICATION
     Dosage: DOSE: UNKNOWN
     Route: 065
  3. MILURIT [Concomitant]
     Active Substance: ALLOPURINOL
     Indication: PRODUCT USED FOR UNKNOWN INDICATION
     Dosage: DOSE: UNKNOWN
     Route: 005
  4. IMATINIB. [Suspect]
     Active Substance: IMATINIB MESYLATE
     Dosage: 800 MG, UNK (400 MG PER DAY, IN THE III CYCLE OF THERAPY DOSE INCREASED TO 800 MG)
     Route: 065
  5. IMATINIB. [Suspect]
     Active Substance: IMATINIB MESYLATE
     Indication: NEOPLASM
     Dosage: 400 MG, UNK (400 MG PER DAY, IN THE III CYCLE OF THERAPY DOSE INCREASED TO 800 MG)
     Route: 065
  6. ASENTRA [Concomitant]
     Active Substance: SERTRALINE HYDROCHLORIDE
     Indication: PRODUCT USED FOR UNKNOWN INDICATION
     Dosage: DOSE: UNKNOWN
     Route: 065
  7. BISOCARD [Concomitant]
     Active Substance: BISOPROLOL
     Indication: PRODUCT USED FOR UNKNOWN INDICATION
     Dosage: DOSE: UNKNOWN
     Route: 065
  8. CO PRESTARIUM [Concomitant]
     Indication: PRODUCT USED FOR UNKNOWN INDICATION
     Dosage: UNK
     Route: 065

REACTIONS (12)
  - Motor neurone disease [Recovering/Resolving]
  - Hypokinesia [Recovering/Resolving]
  - Cataract [Recovering/Resolving]
  - Neurological symptom [Recovering/Resolving]
  - Orthosis user [Recovering/Resolving]
  - Pain [Recovering/Resolving]
  - Visual impairment [Recovering/Resolving]
  - Motor dysfunction [Recovering/Resolving]
  - Paresis [Recovering/Resolving]
  - Monoparesis [Recovering/Resolving]
  - Gait disturbance [Recovering/Resolving]
  - Deafness [Recovering/Resolving]

NARRATIVE: CASE EVENT DATE: 201503
